FAERS Safety Report 9633128 (Version 2)
Quarter: 2013Q4

REPORT INFORMATION
  Report Type: Spontaneous
  Country: DE (occurrence: DE)
  Receive Date: 20131019
  Receipt Date: 20131215
  Transmission Date: 20140711
  Serious: Yes (Other)
  Sender: FDA-Public Use
  Company Number: DE-ROCHE-1290467

PATIENT
  Age: 72 Year
  Sex: Male
  Weight: 64 kg

DRUGS (3)
  1. ROACTEMRA [Suspect]
     Indication: RHEUMATOID ARTHRITIS
     Route: 042
     Dates: start: 20111026
  2. VITAMIN B12 [Concomitant]
     Indication: HYPOVITAMINOSIS
     Route: 048
     Dates: start: 201109
  3. CALCIUM D3 [Concomitant]
     Indication: OSTEOPOROSIS
     Dosage: 1000/800 MG
     Route: 065
     Dates: start: 201208

REACTIONS (4)
  - Local swelling [Recovered/Resolved]
  - Inflammation [Recovered/Resolved]
  - Purulent discharge [Recovered/Resolved]
  - Foot deformity [Unknown]
